FAERS Safety Report 23942485 (Version 3)
Quarter: 2024Q2

REPORT INFORMATION
  Report Type: Spontaneous
  Country: RS (occurrence: None)
  Receive Date: 20240605
  Receipt Date: 20240611
  Transmission Date: 20240716
  Serious: Yes (Other)
  Sender: FDA-Public Use
  Company Number: 2024A127763

PATIENT
  Age: 64 Year
  Sex: Female

DRUGS (10)
  1. DAPAGLIFLOZIN [Suspect]
     Active Substance: DAPAGLIFLOZIN
     Indication: Heart failure with reduced ejection fraction
     Route: 048
  2. FUROSEMIDE [Suspect]
     Active Substance: FUROSEMIDE
  3. ASPIRIN [Concomitant]
     Active Substance: ASPIRIN
  4. TICAGRELOR [Concomitant]
     Active Substance: TICAGRELOR
  5. RAMIPRIL [Concomitant]
     Active Substance: RAMIPRIL
  6. BISOPROLOL [Concomitant]
     Active Substance: BISOPROLOL\BISOPROLOL FUMARATE
  7. SPIRONOLACTONE [Concomitant]
     Active Substance: SPIRONOLACTONE
  8. ROSUVASTATIN [Concomitant]
     Active Substance: ROSUVASTATIN
  9. ATORVASTATIN [Concomitant]
     Active Substance: ATORVASTATIN
  10. FUROSEMIDE [Concomitant]
     Active Substance: FUROSEMIDE

REACTIONS (2)
  - Azotaemia [Unknown]
  - Blood creatinine increased [Unknown]
